FAERS Safety Report 6966177-9 (Version None)
Quarter: 2010Q3

REPORT INFORMATION
  Report Type: 
  Country: None (occurrence: None)
  Receive Date: 20100903
  Receipt Date: 20100823
  Transmission Date: 20110219
  Serious: Yes (Hospitalization, Other)
  Sender: FDA-Public Use
  Company Number: FR-ELI_LILLY_AND_COMPANY-FR201008006300

PATIENT
  Age: 79 Year
  Sex: Female

DRUGS (2)
  1. ZYPREXA [Suspect]
     Indication: BIPOLAR DISORDER
     Dosage: 5 MG, EACH MORNING
     Route: 048
  2. ZYPREXA [Suspect]
     Dosage: 10 MG, EACH EVENING

REACTIONS (10)
  - ALOPECIA [None]
  - CEREBROVASCULAR ACCIDENT [None]
  - COMA [None]
  - DEAFNESS [None]
  - DEMENTIA [None]
  - DIABETES MELLITUS [None]
  - FALL [None]
  - PNEUMONIA [None]
  - PNEUMONIA ASPIRATION [None]
  - WEIGHT INCREASED [None]
